FAERS Safety Report 13409328 (Version 1)
Quarter: 2017Q2

REPORT INFORMATION
  Report Type: Spontaneous
  Country: US (occurrence: US)
  Receive Date: 20170406
  Receipt Date: 20170406
  Transmission Date: 20170830
  Serious: No
  Sender: FDA-Public Use
  Company Number: None

PATIENT
  Age: 43 Year
  Sex: Female

DRUGS (1)
  1. TALTZ [Suspect]
     Active Substance: IXEKIZUMAB
     Indication: PSORIASIS
     Dosage: OTHER FREQUENCY:Q2W FOR WEEKS 4-12;?
     Route: 058

REACTIONS (2)
  - Laryngitis [None]
  - Influenza [None]

NARRATIVE: CASE EVENT DATE: 20170401
